FAERS Safety Report 24197895 (Version 1)
Quarter: 2024Q3

REPORT INFORMATION
  Report Type: Report from Study
  Country: US (occurrence: US)
  Receive Date: 20240811
  Receipt Date: 20240811
  Transmission Date: 20241017
  Serious: Yes (Hospitalization)
  Sender: BIOGEN
  Company Number: US-BIOGEN-2024BI01277528

PATIENT
  Sex: Male

DRUGS (5)
  1. VUMERITY [Suspect]
     Active Substance: DIROXIMEL FUMARATE
     Indication: Multiple sclerosis
     Dosage: MAINTENANCE DOSE
     Route: 050
  2. VITAMIN C [Concomitant]
     Active Substance: ASCORBIC ACID
     Indication: Product used for unknown indication
     Route: 050
  3. D2000 ULTRA STRENGTH B12 FAST DISSOLVE [Concomitant]
     Indication: Product used for unknown indication
     Route: 050
  4. IRON [Concomitant]
     Active Substance: IRON
     Indication: Product used for unknown indication
     Route: 050
  5. GLUCOSAMINE 1500 COMPLEX [Concomitant]
     Indication: Product used for unknown indication
     Route: 050

REACTIONS (2)
  - Urinary tract disorder [Unknown]
  - Urinary tract infection [Unknown]
